FAERS Safety Report 11165506 (Version 1)
Quarter: 2015Q2

REPORT INFORMATION
  Report Type: Report from Study
  Country: US (occurrence: US)
  Receive Date: 20150604
  Receipt Date: 20150604
  Transmission Date: 20150821
  Serious: Yes (Life-Threatening, Hospitalization)
  Sender: FDA-Public Use
  Company Number: PHHY2015US064555

PATIENT
  Age: 41 Year
  Sex: Male

DRUGS (13)
  1. 5 FLUORO URACIL [Suspect]
     Active Substance: FLUOROURACIL
     Dosage: 4130 MG (INFUSION), BIW (ONCE IN TWO WEEK)
     Route: 042
     Dates: start: 20140915
  2. OXALIPLATIN. [Suspect]
     Active Substance: OXALIPLATIN
     Indication: COLORECTAL CANCER METASTATIC
     Dosage: 150 MG, BIW (ONCE IN TWO WEEK)
     Route: 042
     Dates: start: 20140714, end: 20140908
  3. OXALIPLATIN. [Suspect]
     Active Substance: OXALIPLATIN
     Dosage: 150 MG, BIW (ONCE IN TWO WEEK)
     Route: 042
     Dates: start: 20140915
  4. 5 FLUORO URACIL [Suspect]
     Active Substance: FLUOROURACIL
     Dosage: 690 MG (BOLUS), BIW
     Route: 040
     Dates: start: 20140714, end: 20140908
  5. 5 FLUORO URACIL [Suspect]
     Active Substance: FLUOROURACIL
     Dosage: 690 MG (BOLUS), BIW
     Route: 040
     Dates: start: 20140915
  6. BEVACIZUMAB [Suspect]
     Active Substance: BEVACIZUMAB
     Indication: COLORECTAL CANCER METASTATIC
     Dosage: 338 MG, BIW (ONCE IN TWO WEEK)
     Route: 042
     Dates: start: 20140714, end: 20140811
  7. CALCIUM FOLINATE [Suspect]
     Active Substance: LEUCOVORIN CALCIUM
     Indication: COLORECTAL CANCER METASTATIC
     Dosage: 690 MG, BIW (ONCE IN TWO WEEK)
     Route: 042
     Dates: start: 20140714, end: 20140908
  8. BEVACIZUMAB [Suspect]
     Active Substance: BEVACIZUMAB
     Dosage: 338 MG, BIW (ONCE IN TWO WEEK)
     Route: 042
     Dates: start: 20141015
  9. IRINOTECAN [Suspect]
     Active Substance: IRINOTECAN
     Indication: COLORECTAL CANCER METASTATIC
     Dosage: 310 MG, BIW (ONCE IN TWO WEEK)
     Route: 042
     Dates: start: 20140811, end: 20140908
  10. IRINOTECAN [Suspect]
     Active Substance: IRINOTECAN
     Dosage: 310 MG, BIW (ONCE IN TWO WEEK)
     Route: 042
     Dates: start: 20140915
  11. CALCIUM FOLINATE [Suspect]
     Active Substance: LEUCOVORIN CALCIUM
     Dosage: 690 MG, BIW (ONCE IN TWO WEEK)
     Route: 042
     Dates: start: 20140915
  12. 5 FLUORO URACIL [Suspect]
     Active Substance: FLUOROURACIL
     Indication: COLORECTAL CANCER METASTATIC
     Dosage: 4130 MG (INFUSION), BIW (ONCE IN TWO WEEK)
     Route: 042
     Dates: start: 20140714, end: 20140908
  13. BEVACIZUMAB [Suspect]
     Active Substance: BEVACIZUMAB
     Dosage: 338 MG, BIW (ONCE IN TWO WEEK)
     Route: 042
     Dates: start: 20140915

REACTIONS (6)
  - Pulmonary embolism [Not Recovered/Not Resolved]
  - Pyrexia [Recovered/Resolved]
  - Pneumonia [Recovered/Resolved]
  - Cough [Unknown]
  - Blood pressure diastolic decreased [Unknown]
  - Heart rate increased [Unknown]

NARRATIVE: CASE EVENT DATE: 20140903
